FAERS Safety Report 6835820-7 (Version None)
Quarter: 2010Q3

REPORT INFORMATION
  Report Type: 
  Country: None (occurrence: None)
  Receive Date: 20100712
  Receipt Date: 20100712
  Transmission Date: 20110219
  Serious: No
  Sender: FDA-Public Use
  Company Number: None

PATIENT
  Age: 35 Year
  Sex: Female
  Weight: 90.7194 kg

DRUGS (1)
  1. MIRENA [Suspect]
     Indication: CONTRACEPTION
     Dates: start: 20061007, end: 20100710

REACTIONS (5)
  - ACNE [None]
  - BACK PAIN [None]
  - DEPRESSION [None]
  - MIGRAINE [None]
  - OEDEMA PERIPHERAL [None]
